FAERS Safety Report 14491294 (Version 5)
Quarter: 2018Q2

REPORT INFORMATION
  Report Type: Spontaneous
  Country: IT (occurrence: IT)
  Receive Date: 20180206
  Receipt Date: 20180605
  Transmission Date: 20180711
  Serious: Yes (Other)
  Sender: FDA-Public Use
  Company Number: PHHY2017IT200117

PATIENT

DRUGS (13)
  1. PANITUMUMAB [Suspect]
     Active Substance: PANITUMUMAB
     Indication: ADENOCARCINOMA OF COLON
     Dosage: 60% OF THE ORIGINAL DOSE, Q3WK
     Route: 065
     Dates: start: 20150601
  2. CAPECITABINE. [Suspect]
     Active Substance: CAPECITABINE
     Dosage: 1000 MG/M2, CYCLIC(ON D1-14 Q3W, FOR 7 CYCLES)
     Route: 065
     Dates: start: 20120401, end: 20131201
  3. FLUOROURACIL. [Suspect]
     Active Substance: FLUOROURACIL
     Indication: ADENOCARCINOMA OF COLON
  4. FOLINIC ACID [Suspect]
     Active Substance: LEUCOVORIN
     Indication: ADENOCARCINOMA OF COLON
     Dosage: 200 MG/M2, UNK (AS A 2-H INFUSION ON DAY 1)
     Route: 065
     Dates: start: 20141001, end: 20150101
  5. IRINOTECAN [Suspect]
     Active Substance: IRINOTECAN
     Dosage: 180 MG/M2, Q2WK
     Route: 065
     Dates: start: 20141001, end: 20150101
  6. FLUOROURACIL. [Suspect]
     Active Substance: FLUOROURACIL
     Dosage: 400 MG/M2, D1:400/MG/M^2,THEN 2400 MG/M^2
     Route: 040
     Dates: start: 20141001, end: 20150101
  7. OXALIPLATIN. [Suspect]
     Active Substance: OXALIPLATIN
     Indication: ADENOCARCINOMA OF COLON
     Dosage: 130 MG/M2, UNK (ON DAY 1, FOR 7 CYCLES)
     Route: 065
     Dates: start: 20120401
  8. IRINOTECAN [Suspect]
     Active Substance: IRINOTECAN
     Indication: ADENOCARCINOMA OF COLON
  9. CAPECITABINE. [Suspect]
     Active Substance: CAPECITABINE
     Indication: ADENOCARCINOMA OF COLON
  10. PANITUMUMAB [Suspect]
     Active Substance: PANITUMUMAB
     Dosage: 6 MG/KG, UNK (ON DAY 1) RESTARTED ON JUN-2015 AT 60% OF ORIGINAL DOSE Q3W
     Route: 065
     Dates: start: 201410, end: 201506
  11. BEVACIZUMAB. [Suspect]
     Active Substance: BEVACIZUMAB
     Dosage: 7.5 MG/KG, CYCLIC (ON D1 OF THE 3-WEEKLY CYCLE, FOR 7 CYCLES)
     Route: 065
     Dates: start: 20120401, end: 20120401
  12. BEVACIZUMAB. [Suspect]
     Active Substance: BEVACIZUMAB
     Indication: ADENOCARCINOMA OF COLON
     Dosage: 7.5 MG/KG, CYCLIC (ON D1 OF THE 3-WEEKLY CYCLE, FOR 7 CYCLES)
     Route: 065
     Dates: start: 20131201
  13. LEUCOVORIN. [Concomitant]
     Active Substance: LEUCOVORIN
     Indication: ADENOCARCINOMA OF COLON
     Dosage: UNK
     Route: 065

REACTIONS (8)
  - Skin toxicity [Unknown]
  - Diarrhoea [Unknown]
  - Asthenia [Unknown]
  - Neuropathy peripheral [Unknown]
  - Neutropenia [Unknown]
  - Palmar-plantar erythrodysaesthesia syndrome [Unknown]
  - Off label use [Unknown]
  - Drug effective for unapproved indication [Unknown]

NARRATIVE: CASE EVENT DATE: 2014
